FAERS Safety Report 5368428-3 (Version None)
Quarter: 2007Q2

REPORT INFORMATION
  Report Type: 
  Country: None (occurrence: None)
  Receive Date: 20070621
  Receipt Date: 20070621
  Transmission Date: 20071010
  Serious: Yes (Other)
  Sender: FDA-Public Use
  Company Number: None

PATIENT
  Age: 52 Year
  Sex: Female
  Weight: 69.8539 kg

DRUGS (2)
  1. EFFEXOR XR [Suspect]
     Indication: DEPRESSION
     Dosage: ONE CAPSULE QD PO
     Route: 048
     Dates: start: 20051101
  2. EFFEXOR XR [Suspect]
     Indication: HOT FLUSH
     Dosage: ONE CAPSULE QD PO
     Route: 048
     Dates: start: 20051101

REACTIONS (6)
  - DRUG DEPENDENCE [None]
  - HEADACHE [None]
  - INSOMNIA [None]
  - MALAISE [None]
  - NERVOUS SYSTEM DISORDER [None]
  - UNEVALUABLE EVENT [None]
